FAERS Safety Report 8507427-7 (Version None)
Quarter: 2012Q3

REPORT INFORMATION
  Report Type: 
  Country: None (occurrence: None)
  Receive Date: 20120712
  Receipt Date: 20120706
  Transmission Date: 20120928
  Serious: Yes (Hospitalization)
  Sender: FDA-Public Use
  Company Number: US-BAYER-2012-013108

PATIENT
  Age: 46 Year
  Sex: Female
  Weight: 80.726 kg

DRUGS (3)
  1. SYNTHROID [Concomitant]
     Dosage: 100MCG, UNK
  2. YAZ [Suspect]
     Indication: OVARIAN CYST
     Dosage: UNK
     Dates: start: 20070101, end: 20080101
  3. NAPROXEN [Concomitant]

REACTIONS (9)
  - PULMONARY EMBOLISM [None]
  - PHYSICAL DISABILITY [None]
  - EMOTIONAL DISTRESS [None]
  - GENERAL PHYSICAL HEALTH DETERIORATION [None]
  - DEEP VEIN THROMBOSIS [None]
  - ANHEDONIA [None]
  - PAIN [None]
  - ANXIETY [None]
  - INJURY [None]
